FAERS Safety Report 18114635 (Version 1)
Quarter: 2020Q3

REPORT INFORMATION
  Report Type: Spontaneous
  Country: IR (occurrence: IR)
  Receive Date: 20200805
  Receipt Date: 20200805
  Transmission Date: 20201103
  Serious: Yes (Hospitalization, Other)
  Sender: FDA-Public Use
  Company Number: IR-GLAXOSMITHKLINE-IR2020GSK147767

PATIENT
  Age: 32 Month
  Sex: Female

DRUGS (1)
  1. DICLOFENAC [Suspect]
     Active Substance: DICLOFENAC
     Indication: PYREXIA
     Dosage: UNK

REACTIONS (18)
  - Asthenia [Recovering/Resolving]
  - Rash macular [Recovering/Resolving]
  - Toxic epidermal necrolysis [Recovering/Resolving]
  - Conjunctivitis [Recovering/Resolving]
  - Blister [Recovering/Resolving]
  - Illness [Recovering/Resolving]
  - Rash erythematous [Recovering/Resolving]
  - Oral disorder [Recovering/Resolving]
  - Genital rash [Recovering/Resolving]
  - Ocular hyperaemia [Recovering/Resolving]
  - Red blood cell sedimentation rate increased [Recovering/Resolving]
  - Rash [Recovering/Resolving]
  - Mouth haemorrhage [Recovering/Resolving]
  - Necrosis [Recovering/Resolving]
  - C-reactive protein increased [Recovering/Resolving]
  - Genital lesion [Recovering/Resolving]
  - Skin lesion [Recovering/Resolving]
  - Pyrexia [Recovered/Resolved]
